FAERS Safety Report 7763929-2 (Version None)
Quarter: 2011Q3

REPORT INFORMATION
  Report Type: 
  Country: None (occurrence: None)
  Receive Date: 20110916
  Receipt Date: 20110908
  Transmission Date: 20111222
  Serious: Yes (Hospitalization, Other)
  Sender: FDA-Public Use
  Company Number: VAL_00611_2011

PATIENT
  Age: 38 Year
  Sex: Male

DRUGS (1)
  1. CARBAMAZEPINE [Suspect]
     Indication: CONVULSION
     Dosage: (100 MG TWICE DAILY WITH SLOW UP-TRITRATION OF THE DOSE TO 300 MG TWICE DAILY)

REACTIONS (17)
  - DYSPNOEA [None]
  - STAPHYLOCOCCUS TEST POSITIVE [None]
  - SCAB [None]
  - KERATITIS [None]
  - ALANINE AMINOTRANSFERASE INCREASED [None]
  - TOXIC EPIDERMAL NECROLYSIS [None]
  - BLISTER [None]
  - TACHYPNOEA [None]
  - HYPONATRAEMIA [None]
  - PSEUDOMONAS TEST POSITIVE [None]
  - HYPERKALAEMIA [None]
  - HEADACHE [None]
  - HYPOTENSION [None]
  - CONJUNCTIVAL HYPERAEMIA [None]
  - ASPARTATE AMINOTRANSFERASE INCREASED [None]
  - PYREXIA [None]
  - MADAROSIS [None]
